FAERS Safety Report 18683402 (Version 1)
Quarter: 2020Q4

REPORT INFORMATION
  Report Type: Other
  Country: US (occurrence: US)
  Receive Date: 20201230
  Receipt Date: 20201230
  Transmission Date: 20210114
  Serious: Yes (Other)
  Sender: FDA-Public Use
  Company Number: US-ROCHE-2738678

PATIENT
  Age: 63 Year
  Sex: Female

DRUGS (4)
  1. MYCOPHENOLATE [Concomitant]
     Active Substance: MYCOPHENOLIC ACID
  2. TACROLIMUS. [Concomitant]
     Active Substance: TACROLIMUS
  3. RIBAVIRIN. [Suspect]
     Active Substance: RIBAVIRIN
     Indication: HEPATITIS C
     Route: 065
  4. SOFOSBUVIR [Concomitant]
     Active Substance: SOFOSBUVIR

REACTIONS (1)
  - Renal failure [Unknown]
